FAERS Safety Report 9562004 (Version 1)
Quarter: 2013Q3

REPORT INFORMATION
  Report Type: Spontaneous
  Country: SE (occurrence: SE)
  Receive Date: 20130927
  Receipt Date: 20130927
  Transmission Date: 20140515
  Serious: No
  Sender: FDA-Public Use
  Company Number: SE-JNJFOC-20130915385

PATIENT
  Age: 70 Year
  Sex: Male

DRUGS (4)
  1. DUROGESIC [Suspect]
     Indication: CANCER PAIN
     Route: 062
     Dates: start: 20130523
  2. DUROGESIC [Suspect]
     Indication: CANCER PAIN
     Route: 062
     Dates: start: 20130815
  3. DUROGESIC [Suspect]
     Indication: CANCER PAIN
     Route: 062
     Dates: start: 20130824
  4. DUROGESIC [Suspect]
     Indication: CANCER PAIN
     Route: 062
     Dates: start: 20130325

REACTIONS (1)
  - Inappropriate schedule of drug administration [Unknown]
